FAERS Safety Report 9348014 (Version 1)
Quarter: 2013Q2

REPORT INFORMATION
  Report Type: Spontaneous
  Country: GB (occurrence: GB)
  Receive Date: 20130614
  Receipt Date: 20130614
  Transmission Date: 20140414
  Serious: Yes (Life-Threatening, Other)
  Sender: FDA-Public Use
  Company Number: GB-JNJFOC-20130606620

PATIENT
  Age: 63 Year
  Sex: Male

DRUGS (16)
  1. XARELTO [Suspect]
     Indication: EMBOLISM VENOUS
     Route: 048
     Dates: start: 20130417, end: 20130421
  2. XARELTO [Suspect]
     Indication: DEEP VEIN THROMBOSIS
     Route: 048
     Dates: start: 20130417, end: 20130421
  3. BACLOFEN [Concomitant]
     Route: 065
  4. CARBOCISTEINE [Concomitant]
     Route: 065
  5. PARACETAMOL [Concomitant]
     Route: 065
  6. DIAZEPAM [Concomitant]
     Route: 065
  7. DOCUSATE [Concomitant]
     Route: 065
  8. FLUTICASONE [Concomitant]
     Route: 065
  9. RANITIDINE [Concomitant]
     Route: 065
  10. SALBUTAMOL [Concomitant]
     Route: 065
  11. SENNOSIDE A + B [Concomitant]
     Route: 065
  12. CLOPIDOGREL [Concomitant]
     Route: 065
  13. CITALOPRAM [Concomitant]
     Route: 065
  14. ATORVASTATIN [Concomitant]
     Route: 065
  15. ZOPICLONE [Concomitant]
     Route: 065
  16. AMITRIPTYLINE [Concomitant]
     Route: 065

REACTIONS (3)
  - Splenic haematoma [Recovered/Resolved with Sequelae]
  - Splenic rupture [Recovered/Resolved with Sequelae]
  - Abdominal pain [Unknown]
